FAERS Safety Report 20912642 (Version 1)
Quarter: 2022Q2

REPORT INFORMATION
  Report Type: Spontaneous
  Country: US (occurrence: None)
  Receive Date: 20220603
  Receipt Date: 20220603
  Transmission Date: 20220720
  Serious: No
  Sender: FDA-Public Use
  Company Number: None

PATIENT
  Age: 52 Year
  Sex: Female
  Weight: 83.91 kg

DRUGS (1)
  1. ORENCIA [Suspect]
     Active Substance: ABATACEPT
     Indication: Rheumatoid arthritis
     Dosage: FREQUENCY : WEEKLY;?
     Route: 058
     Dates: start: 202203

REACTIONS (8)
  - Malaise [None]
  - Back pain [None]
  - Gastric disorder [None]
  - Hypertonic bladder [None]
  - Limb discomfort [None]
  - Infection [None]
  - Rheumatoid arthritis [None]
  - Fibromyalgia [None]
